FAERS Safety Report 13206253 (Version 1)
Quarter: 2017Q1

REPORT INFORMATION
  Report Type: Spontaneous
  Country: US (occurrence: US)
  Receive Date: 20170209
  Receipt Date: 20170209
  Transmission Date: 20170428
  Serious: No
  Sender: FDA-Public Use
  Company Number: US-SA-2017SA012117

PATIENT
  Sex: Female

DRUGS (2)
  1. INSULIN [Concomitant]
     Active Substance: INSULIN NOS
  2. PRALUENT [Suspect]
     Active Substance: ALIROCUMAB
     Indication: HYPERCHOLESTEROLAEMIA
     Route: 058
     Dates: start: 20160919, end: 20170118

REACTIONS (5)
  - Muscle twitching [Unknown]
  - Myalgia [Unknown]
  - Blood glucose increased [Unknown]
  - Condition aggravated [Unknown]
  - Muscle atrophy [Unknown]
